FAERS Safety Report 9867005 (Version 6)
Quarter: 2014Q4

REPORT INFORMATION
  Report Type: Spontaneous
  Country: US (occurrence: None)
  Receive Date: 20140131
  Receipt Date: 20141003
  Transmission Date: 20150529
  Serious: Yes (Hospitalization)
  Sender: FDA-Public Use
  Company Number: US-000879

PATIENT
  Age: 55 Year
  Sex: Female

DRUGS (18)
  1. SWISSE WOMANS ULTIVITE MULTIVITAMIN, MINERAL [Concomitant]
  2. KLOR-CON [Concomitant]
     Active Substance: POTASSIUM CHLORIDE
  3. B COMPLETE [Concomitant]
  4. FERROUS SULFATE [Concomitant]
     Active Substance: FERROUS SULFATE\FERROUS SULFATE, DRIED
  5. LOMOTIL [Concomitant]
     Active Substance: ATROPINE SULFATE\DIPHENOXYLATE HYDROCHLORIDE
  6. PROBIOTICS NOS [Concomitant]
     Active Substance: PROBIOTICS NOS
  7. FLUDROCORTISONE [Concomitant]
     Active Substance: FLUDROCORTISONE
  8. KLONOPIN [Concomitant]
     Active Substance: CLONAZEPAM
  9. OXYCODONE [Concomitant]
     Active Substance: OXYCODONE
  10. HYDROXYZINE [Concomitant]
     Active Substance: HYDROXYZINE\HYDROXYZINE HYDROCHLORIDE
  11. GATTEX [Suspect]
     Active Substance: TEDUGLUTIDE\WATER
     Indication: SHORT-BOWEL SYNDROME
     Dosage: (0.28 ML QD, STREN/VOLUM: 0.28 MLIFREQU: ONCE A DAY SUBCUTANEOUS), (0.28 ML QD, STREN/VOLUM: 0.28 MLIFREQU: ONCE A DAY SUBCUTANEOUS)
     Route: 058
     Dates: start: 20131212, end: 20131231
  12. HYDROCORTISONE. [Concomitant]
     Active Substance: HYDROCORTISONE
  13. PROMETHAZINE [Concomitant]
     Active Substance: PROMETHAZINE\PROMETHAZINE HYDROCHLORIDE
  14. AMBIEN [Concomitant]
     Active Substance: ZOLPIDEM TARTRATE
  15. ZOLOFT [Concomitant]
     Active Substance: SERTRALINE HYDROCHLORIDE
  16. LOPERAMIDE [Concomitant]
     Active Substance: LOPERAMIDE
  17. QUESTRAN [Concomitant]
     Active Substance: CHOLESTYRAMINE
  18. SOLUTIONS FOR PARENTERAL NUTRITION [Concomitant]
     Active Substance: AMINO ACIDS\DEXTROSE\ELECTROLYTES NOS

REACTIONS (16)
  - Drug dose omission [None]
  - Pain in extremity [None]
  - Device related infection [None]
  - Dehydration [None]
  - Pyrexia [None]
  - Stoma site reaction [None]
  - Sepsis [None]
  - Gastrointestinal stoma complication [None]
  - Headache [None]
  - Eye pain [None]
  - Refusal of treatment by patient [None]
  - Oxygen saturation decreased [None]
  - Malaise [None]
  - Nausea [None]
  - Vomiting [None]
  - Dysgeusia [None]

NARRATIVE: CASE EVENT DATE: 201312
